FAERS Safety Report 8516360-6 (Version None)
Quarter: 2012Q3

REPORT INFORMATION
  Report Type: 
  Country: None (occurrence: None)
  Receive Date: 20120718
  Receipt Date: 20120713
  Transmission Date: 20120928
  Serious: Yes (Life-Threatening, Hospitalization)
  Sender: FDA-Public Use
  Company Number: DE-BIOGENIDEC-2010BI036275

PATIENT
  Age: 48 Year
  Sex: Female
  Weight: 72 kg

DRUGS (1)
  1. TYSABRI [Suspect]
     Indication: RELAPSING-REMITTING MULTIPLE SCLEROSIS
     Route: 042
     Dates: start: 20070606, end: 20100201

REACTIONS (2)
  - PROGRESSIVE MULTIFOCAL LEUKOENCEPHALOPATHY [None]
  - MONOPARESIS [None]
